FAERS Safety Report 7880810-9 (Version None)
Quarter: 2011Q4

REPORT INFORMATION
  Report Type: 
  Country: None (occurrence: None)
  Receive Date: 20111101
  Receipt Date: 20111020
  Transmission Date: 20120403
  Serious: Yes (Death, Hospitalization)
  Sender: FDA-Public Use
  Company Number: CA-BAXTER-2011BH032197

PATIENT
  Age: 18 Year
  Sex: Male

DRUGS (4)
  1. EXTRANEAL [Suspect]
     Indication: PERITONEAL DIALYSIS
     Route: 033
     Dates: start: 20100701, end: 20110422
  2. DIANEAL [Suspect]
     Indication: PERITONEAL DIALYSIS
     Route: 033
     Dates: start: 20100701, end: 20110422
  3. DIANEAL [Suspect]
     Indication: RENAL FAILURE
     Route: 033
     Dates: start: 20100701, end: 20110422
  4. EXTRANEAL [Suspect]
     Indication: RENAL FAILURE
     Route: 033
     Dates: start: 20100701, end: 20110422

REACTIONS (2)
  - CEREBROVASCULAR ACCIDENT [None]
  - HYPERTENSIVE ENCEPHALOPATHY [None]
